FAERS Safety Report 7086571-8 (Version None)
Quarter: 2010Q4

REPORT INFORMATION
  Report Type: 
  Country: None (occurrence: None)
  Receive Date: 20101028
  Receipt Date: 20101021
  Transmission Date: 20110411
  Serious: Yes (Life-Threatening, Hospitalization)
  Sender: FDA-Public Use
  Company Number: 2010JP003948

PATIENT
  Age: 72 Year
  Sex: Female
  Weight: 57.5 kg

DRUGS (60)
  1. TACROLIMUS [Suspect]
     Indication: INTERSTITIAL LUNG DISEASE
     Dosage: (0.5 MG, BID, ORAL) (2MG, BID, ORAL) (1.5 MG, BID, ORAL) (2.5 MG, D, ORAL)
     Route: 048
     Dates: start: 20090925, end: 20090928
  2. TACROLIMUS [Suspect]
     Indication: INTERSTITIAL LUNG DISEASE
     Dosage: (0.5 MG, BID, ORAL) (2MG, BID, ORAL) (1.5 MG, BID, ORAL) (2.5 MG, D, ORAL)
     Route: 048
     Dates: start: 20090929, end: 20100113
  3. TACROLIMUS [Suspect]
     Indication: INTERSTITIAL LUNG DISEASE
     Dosage: (0.5 MG, BID, ORAL) (2MG, BID, ORAL) (1.5 MG, BID, ORAL) (2.5 MG, D, ORAL)
     Route: 048
     Dates: start: 20100114, end: 20100510
  4. TACROLIMUS [Suspect]
     Indication: INTERSTITIAL LUNG DISEASE
     Dosage: (0.5 MG, BID, ORAL) (2MG, BID, ORAL) (1.5 MG, BID, ORAL) (2.5 MG, D, ORAL)
     Route: 048
     Dates: start: 20100511, end: 20100704
  5. PREDNISOLONE [Concomitant]
  6. PREDNISOLONE [Concomitant]
  7. LASIX [Concomitant]
  8. FUNGIZONE [Concomitant]
  9. LOPERANIL TAIYO (LOPERAMIDE HYDROCHLORIDE) [Concomitant]
  10. NOVOLOG [Concomitant]
  11. LIPITOR [Concomitant]
  12. TAPIZOL (LANSOPRAZOLE) [Concomitant]
  13. AMLODIPINE [Concomitant]
  14. BAKTAR (SULFAMETHOXAZOLE, TRIMETHORPRIM) [Concomitant]
  15. TANATRIL (IMIDAPRIL HYDROCHLORIDE) [Concomitant]
  16. PLATBIT (ALFACALCIDOL) [Concomitant]
  17. PLETAL [Concomitant]
  18. URSO 250 [Concomitant]
  19. BIO THREE (CLOSTRIDIUM, LACTOBACCILLUS ACIDOPHILUS, SACCHAROMYCES BOUL [Concomitant]
  20. ALBUMIN INJECTION [Concomitant]
  21. LANSOPRAZOLE [Concomitant]
  22. FULCALIQ (AMINO ACIDS NOS, CARBOHYDRATES NOS, ELECTROLYTES NOS, VITAMI [Concomitant]
  23. MEDLENIK (COPPER SULFATE, FERRIC CHLORIDE, MANGANESE CHLORIDE, POTASSI [Concomitant]
  24. HUMULIN R [Concomitant]
  25. FUNGIZONE [Concomitant]
  26. NEGIMEN (PROVIDONE-IODINE) [Concomitant]
  27. SOLDACTONE (POTASSIUM CANRENOATE) [Concomitant]
  28. GANCICLOVIR SODIUM [Concomitant]
  29. PREDONINE (PREDNISOLONE SODIUM SUCCINATE) [Concomitant]
  30. DIAMOX [Concomitant]
  31. OMEPRAL (OMEPRAZOLE SODIUM) [Concomitant]
  32. URSO 250 [Concomitant]
  33. LACTULOSE [Concomitant]
  34. SOL MEDROL (METHYLPREDNISOLONE, SUCCINATE SODIUM) [Concomitant]
  35. VOLTAREN [Concomitant]
  36. XYLOCAINE [Concomitant]
  37. PLATELETS, CONCENTRATED [Concomitant]
  38. PURSENIDE (SENNOSIDE A+B) [Concomitant]
  39. RED BLOOD CELLS, CONCENTRATED [Concomitant]
  40. HUMALOG [Concomitant]
  41. LANTUS [Concomitant]
  42. BFLUID INJECTION [Concomitant]
  43. RIMEFA 3B TOWA (HYDROXOCOBALAMIN ACETATE, PYRIDOXINE HYDROCHLORIDE, TH [Concomitant]
  44. INTRALIPOS (GLYCINE MAX SEED OIL) [Concomitant]
  45. ASPARA K (ASPARTATE POTASSIUM) [Concomitant]
  46. ADONA (THIAMINE MONONITRATE) [Concomitant]
  47. HICALIQ (CALCIUM GLUCONATE, GLUCOSE, MAGNESIUM SULFATE, POTASSIUM ACET [Concomitant]
  48. PANTOL (PANTHENOL) [Concomitant]
  49. AMINOLEBAN (VALINE) [Concomitant]
  50. NEOLAMIN MULTI V (VITAMINS NOS) [Concomitant]
  51. CEFTRIAZONE SODIUM [Concomitant]
  52. MIDAZOLAM HCL [Concomitant]
  53. FLURBIPROFEN [Concomitant]
  54. VANCOMYCIN (VANVOMYCIN HYDROCHLORIDE) [Concomitant]
  55. NOVO HEPARIN (HEPARIN) [Concomitant]
  56. SOLYUGEN (XYLITOL) [Concomitant]
  57. POTASSIUM CHLORIDE [Concomitant]
  58. NIZORAL [Concomitant]
  59. GLUCOSE [Concomitant]
  60. AMIPHARGEN P (AMINOACETIC ACID, CYSTEINE HYDROCHLORIDE, GLYCERRHIZIC A [Concomitant]

REACTIONS (14)
  - ACUTE RESPIRATORY DISTRESS SYNDROME [None]
  - ACUTE RESPIRATORY FAILURE [None]
  - ASCITES [None]
  - AUTOIMMUNE THROMBOCYTOPENIA [None]
  - CARDIO-RESPIRATORY ARREST [None]
  - HEPATIC CIRRHOSIS [None]
  - HEPATIC ENCEPHALOPATHY [None]
  - HYPOPROTEINAEMIA [None]
  - METABOLIC ACIDOSIS [None]
  - MULTI-ORGAN FAILURE [None]
  - PANCREATITIS HAEMORRHAGIC [None]
  - PLEURAL EFFUSION [None]
  - PORTAL HYPERTENSION [None]
  - PULMONARY CONGESTION [None]
